FAERS Safety Report 9216972 (Version 1)
Quarter: 2013Q2

REPORT INFORMATION
  Report Type: Spontaneous
  Country: US (occurrence: None)
  Receive Date: 20130403
  Receipt Date: 20130403
  Transmission Date: 20140414
  Serious: Yes (Hospitalization)
  Sender: FDA-Public Use
  Company Number: CABO-13002452

PATIENT
  Age: 56 Year
  Sex: Male

DRUGS (16)
  1. COMETRIQ (CABOZANTINIB) CAPSULE [Suspect]
     Indication: NEOPLASM MALIGNANT
     Route: 048
     Dates: start: 20130201, end: 20130316
  2. AMLODIPINE  (AMLODIPINE MESILATE) [Concomitant]
  3. DULCOLAX (SODIUM PICOSULFATE) [Concomitant]
  4. CALCIUM + VITAMIN D (CALCIUM, COLECALCIFEROL) [Concomitant]
  5. NEXIUM (ESOMEPRAZOLE SODIUM) [Concomitant]
  6. LISINOPRIL (LISINOPRIL DIHYDRATE) (UNKNOWN [Concomitant]
  7. ZOFRAN (ONDANSETRON HYDROCHLORIDE) [Concomitant]
  8. SENNA (SENNA ALEXANDRINA) [Concomitant]
  9. COMPAZINE (PROCHLORPERAZINE MALEATE) [Concomitant]
  10. OXYCODONE (OXYCODONE HYDROCHLORIDE) (OXYCODONE) [Concomitant]
  11. OXYCOTIN (OXYCODONE HYDROCHLORIDE) [Concomitant]
  12. POTASSIUM CHLORIDE (POTASSIUM CHLORIDE) [Concomitant]
  13. PREDNISONE (PREDNISONE ACETATE) [Concomitant]
  14. PRIMIDONE (PRIMIDONE) [Concomitant]
  15. VIAZADONE [Concomitant]
  16. AMBIEN (ZOLPIDEM TARTRATE) [Concomitant]

REACTIONS (12)
  - Renal failure acute [None]
  - Vomiting [None]
  - Nausea [None]
  - Dehydration [None]
  - Hypotension [None]
  - Deep vein thrombosis [None]
  - Bone pain [None]
  - Somnolence [None]
  - Malaise [None]
  - Arthralgia [None]
  - Asthenia [None]
  - Renal failure acute [None]
